FAERS Safety Report 14906266 (Version 2)
Quarter: 2018Q3

REPORT INFORMATION
  Report Type: Spontaneous
  Country: US (occurrence: US)
  Receive Date: 20180517
  Receipt Date: 20180919
  Transmission Date: 20181010
  Serious: Yes (Other)
  Sender: FDA-Public Use
  Company Number: US-SA-2018SA104636

PATIENT
  Age: 73 Year
  Sex: Female

DRUGS (2)
  1. LANTUS SOLOSTAR [Suspect]
     Active Substance: INSULIN GLARGINE
     Dosage: 33 UNITS IN MORNING AND 36 UNITS IN NIGHT
     Route: 065
     Dates: start: 201711
  2. LANTUS SOLOSTAR [Suspect]
     Active Substance: INSULIN GLARGINE
     Indication: TYPE 2 DIABETES MELLITUS
     Dosage: 20 UNITS IN MORNING AND 15 UNITS IN NIGHT
     Route: 065

REACTIONS (4)
  - Blindness unilateral [Unknown]
  - Product use issue [Unknown]
  - Device issue [Unknown]
  - Blood glucose abnormal [Unknown]
